FAERS Safety Report 4821579-1 (Version None)
Quarter: 2005Q4

REPORT INFORMATION
  Report Type: 
  Country: None (occurrence: None)
  Receive Date: 20051103
  Receipt Date: 20051026
  Transmission Date: 20060501
  Serious: Yes (Other)
  Sender: FDA-Public Use
  Company Number: 217828

PATIENT
  Age: 45 Year
  Sex: Female

DRUGS (8)
  1. XOLAIR [Suspect]
     Indication: ASTHMA
     Dosage: 300 MG, Q2S, SUBCUTANEOUS; 225 MG, Q2W, SUBCUTANEOUS
     Route: 058
     Dates: start: 20031201, end: 20040601
  2. XOLAIR [Suspect]
     Indication: ASTHMA
     Dosage: 300 MG, Q2S, SUBCUTANEOUS; 225 MG, Q2W, SUBCUTANEOUS
     Route: 058
     Dates: start: 20030101
  3. STEROID (UNK INGREDIENTS) (STEROID NOS) [Concomitant]
  4. ADVAIR DISKUS 100/50 [Concomitant]
  5. FLUTICASONE (FLUTICASONE PROPIONATE) [Concomitant]
  6. ACCOLATE [Concomitant]
  7. NORVASC [Concomitant]
  8. PREDNISONE [Concomitant]

REACTIONS (7)
  - ASTHMA [None]
  - BLOOD IMMUNOGLOBULIN G DECREASED [None]
  - BLOOD IMMUNOGLOBULIN M INCREASED [None]
  - CONDITION AGGRAVATED [None]
  - SINUSITIS [None]
  - UPPER RESPIRATORY TRACT INFECTION [None]
  - WHITE BLOOD CELL COUNT INCREASED [None]
